FAERS Safety Report 4729964-3 (Version None)
Quarter: 2005Q3

REPORT INFORMATION
  Report Type: 
  Country: None (occurrence: None)
  Receive Date: 20050728
  Receipt Date: 20050719
  Transmission Date: 20060218
  Serious: Yes (Other)
  Sender: FDA-Public Use
  Company Number: 2005-04-0576

PATIENT
  Age: 49 Year
  Sex: Female

DRUGS (3)
  1. TEMODAL [Suspect]
     Indication: ANAPLASTIC ASTROCYTOMA
     Dosage: 300MG X5DAYS* ORAL
     Route: 048
     Dates: start: 20041001, end: 20041001
  2. TEMODAL [Suspect]
     Indication: ANAPLASTIC ASTROCYTOMA
     Dosage: 300MG X5DAYS* ORAL
     Route: 048
     Dates: start: 20041001, end: 20041101
  3. TEMODAL [Suspect]
     Indication: ANAPLASTIC ASTROCYTOMA
     Dosage: 300MG X5DAYS* ORAL
     Route: 048
     Dates: start: 20041101, end: 20041101

REACTIONS (2)
  - CONDITION AGGRAVATED [None]
  - RENAL IMPAIRMENT [None]
